FAERS Safety Report 4373314-1 (Version None)
Quarter: 2004Q2

REPORT INFORMATION
  Report Type: 
  Country: None (occurrence: None)
  Receive Date: 20040603
  Receipt Date: 20040522
  Transmission Date: 20050107
  Serious: Yes (Hospitalization, Other)
  Sender: FDA-Public Use
  Company Number: 2004030982

PATIENT
  Age: 60 Year
  Sex: Male

DRUGS (2)
  1. LIPITOR [Suspect]
     Indication: CORONARY ARTERY DISEASE
     Dosage: 80 MG, ORAL
     Route: 048
     Dates: start: 19940101, end: 20040101
  2. NICOTINIC ACID [Suspect]
     Indication: BLOOD TRIGLYCERIDES INCREASED
     Dosage: 1 GRAM
     Dates: start: 20040101, end: 20040101

REACTIONS (3)
  - BLOOD CREATININE INCREASED [None]
  - BLOOD TRIGLYCERIDES INCREASED [None]
  - RHABDOMYOLYSIS [None]
